FAERS Safety Report 5731290-0 (Version None)
Quarter: 2008Q2

REPORT INFORMATION
  Report Type: 
  Country: None (occurrence: None)
  Receive Date: 20080505
  Receipt Date: 20080424
  Transmission Date: 20081010
  Serious: Yes (Hospitalization, Other)
  Sender: FDA-Public Use
  Company Number: 2008AP001077

PATIENT
  Age: 47 Year
  Sex: Male

DRUGS (7)
  1. CARBAMAZEPINE [Suspect]
     Indication: SCHIZOPHRENIA
     Dates: start: 20050107
  2. CHLORPROMAZINE HCL [Concomitant]
  3. METHOTRIMEPRAZINE (METHOTRIMEPRAZINE) [Concomitant]
  4. BIPERIDEN HYDROCHLORIDE TAB [Concomitant]
  5. NITRAZEPAM [Concomitant]
  6. BROMAZEPAM (BROMAZEPAM) [Concomitant]
  7. CLONAZEPAM [Concomitant]

REACTIONS (9)
  - ALANINE AMINOTRANSFERASE INCREASED [None]
  - BLOOD LACTATE DEHYDROGENASE INCREASED [None]
  - DRUG INEFFECTIVE [None]
  - DRUG RASH WITH EOSINOPHILIA AND SYSTEMIC SYMPTOMS [None]
  - EOSINOPHILIA [None]
  - GAMMA-GLUTAMYLTRANSFERASE INCREASED [None]
  - HUMAN HERPESVIRUS 6 INFECTION [None]
  - HYPOGAMMAGLOBULINAEMIA [None]
  - LYMPHADENOPATHY [None]
